FAERS Safety Report 8200085-0 (Version None)
Quarter: 2012Q1

REPORT INFORMATION
  Report Type: 
  Country: None (occurrence: None)
  Receive Date: 20120312
  Receipt Date: 20120305
  Transmission Date: 20120608
  Serious: Yes (Other)
  Sender: FDA-Public Use
  Company Number: US-SHIRE-ALL1-2012-01246

PATIENT
  Sex: Female
  Weight: 94.331 kg

DRUGS (15)
  1. OMEPRAZOLE [Concomitant]
     Indication: GASTROOESOPHAGEAL REFLUX DISEASE
     Dosage: 40 MG, 1X/DAY:QD
     Route: 065
  2. OXYCODONE HCL [Concomitant]
     Indication: NEURALGIA
     Dosage: 9 MG (THREE 3 MG TABLETS), 1X/DAY:QD IN THE EVENING
     Route: 048
  3. LYRICA [Suspect]
     Indication: NEURALGIA
     Dosage: 450 MG, UNKNOWN
     Route: 048
     Dates: start: 20050101
  4. LYRICA [Suspect]
     Dosage: 100 MG, 2X/DAY:BID
     Route: 048
  5. MEDROL [Suspect]
     Indication: ARTHRALGIA
     Dosage: 4 MG, 2X/DAY:BID
     Route: 048
     Dates: start: 20111101
  6. MEDROL [Suspect]
     Dosage: 4 MG, 1X/DAY:QD
     Route: 048
     Dates: start: 20120213
  7. SINGULAIR [Suspect]
     Indication: ASTHMA
     Dosage: UNK, UNKNOWN
     Route: 065
  8. TAXOL [Concomitant]
     Indication: DEPRESSION
     Dosage: 20 MG, 1X/DAY:QD
     Route: 065
  9. PENTASA [Suspect]
     Indication: CROHN'S DISEASE
     Dosage: 750 MG (THREE 250 MG CAPSULES), 2X/DAY:BID
     Route: 048
  10. AMITRIPTYLINE HCL [Suspect]
     Indication: MUSCLE SPASMS
     Dosage: 25 MG, 1X/DAY:QD
     Route: 065
  11. MEDROL [Suspect]
     Dosage: 4 MG, 1X/DAY:QD
     Route: 048
     Dates: end: 20111101
  12. AMITRIPTYLINE HCL [Suspect]
     Dosage: 10 MG, 1X/DAY:QD
     Route: 065
  13. OXYCODONE HCL [Concomitant]
     Dosage: 6 MG (TWO 3 MG TABLETS), 1X/DAY:QD AT NIGHT
     Route: 048
  14. MEDROL [Suspect]
     Indication: INFLAMMATORY PAIN
     Dosage: 4 MG, UNKNOWN
     Route: 048
  15. PROZAC [Concomitant]
     Indication: DEPRESSION
     Dosage: UNK, 1X/DAY:QD
     Route: 048

REACTIONS (14)
  - SWELLING FACE [None]
  - ERYTHEMA [None]
  - EMOTIONAL DISORDER [None]
  - DRY MOUTH [None]
  - OEDEMA PERIPHERAL [None]
  - ECCHYMOSIS [None]
  - MOOD ALTERED [None]
  - HYPERSENSITIVITY [None]
  - DRUG INTERACTION [None]
  - WEIGHT INCREASED [None]
  - OFF LABEL USE [None]
  - DYSPNOEA [None]
  - PAIN [None]
  - TREATMENT NONCOMPLIANCE [None]
